FAERS Safety Report 4719521-7 (Version None)
Quarter: 2005Q3

REPORT INFORMATION
  Report Type: 
  Country: None (occurrence: None)
  Receive Date: 20050719
  Receipt Date: 20050705
  Transmission Date: 20060218
  Serious: Yes (Death, Life-Threatening, Hospitalization)
  Sender: FDA-Public Use
  Company Number: 2005071773

PATIENT
  Age: 94 Year
  Sex: Male

DRUGS (1)
  1. BEXTRA [Suspect]
     Indication: ARTHRITIS
     Dosage: 20 MG (20 MG, 1 IN 1 D) ORAL
     Route: 048
     Dates: start: 20000101

REACTIONS (3)
  - PNEUMONIA [None]
  - POST PROCEDURAL COMPLICATION [None]
  - TOXIC EPIDERMAL NECROLYSIS [None]
